FAERS Safety Report 13300439 (Version 4)
Quarter: 2017Q3

REPORT INFORMATION
  Report Type: Spontaneous
  Country: US (occurrence: US)
  Receive Date: 20170307
  Receipt Date: 20170725
  Transmission Date: 20171127
  Serious: Yes (Other)
  Sender: FDA-Public Use
  Company Number: US-009507513-1702USA011278

PATIENT
  Age: 32 Year
  Sex: Female
  Weight: 72.3 kg

DRUGS (1)
  1. NEXPLANON [Suspect]
     Active Substance: ETONOGESTREL
     Dosage: 1 ROD EVERY 3 YEARS, LEFT ARM
     Route: 059
     Dates: start: 20150724, end: 20170508

REACTIONS (4)
  - Complication associated with device [Recovered/Resolved]
  - General anaesthesia [Unknown]
  - Device deployment issue [Recovered/Resolved]
  - Complication of device removal [Recovered/Resolved]

NARRATIVE: CASE EVENT DATE: 20170223
